FAERS Safety Report 9683789 (Version 1)
Quarter: 2013Q4

REPORT INFORMATION
  Report Type: Report from Study
  Country: ID (occurrence: ID)
  Receive Date: 20131112
  Receipt Date: 20131112
  Transmission Date: 20140711
  Serious: Yes (Hospitalization)
  Sender: FDA-Public Use
  Company Number: ID-ROCHE-1302029

PATIENT
  Sex: 0

DRUGS (1)
  1. MABTHERA [Suspect]
     Indication: LYMPHOMA
     Route: 042
     Dates: start: 20131101

REACTIONS (5)
  - Hiccups [Unknown]
  - Myalgia [Unknown]
  - Dyspnoea [Unknown]
  - Cold sweat [Unknown]
  - Dizziness [Unknown]
